FAERS Safety Report 6124541-4 (Version None)
Quarter: 2009Q1

REPORT INFORMATION
  Report Type: 
  Country: None (occurrence: None)
  Receive Date: 20090317
  Receipt Date: 20090317
  Transmission Date: 20090719
  Serious: No
  Sender: FDA-Public Use
  Company Number: None

PATIENT
  Age: 41 Year
  Sex: Female

DRUGS (1)
  1. CILOXAN [Suspect]
     Indication: CONJUNCTIVITIS BACTERIAL
     Dosage: 1 TO 2 DROPS EVERY 2 HRS WHILE AWAKE FOR 2 DAYS OPHTHALMIC THEN EVERY 4 HOURS FOR 5 DAYS
     Route: 047
     Dates: start: 20090225, end: 20090227

REACTIONS (2)
  - DRUG HYPERSENSITIVITY [None]
  - NAUSEA [None]
